FAERS Safety Report 5877454-7 (Version None)
Quarter: 2008Q3

REPORT INFORMATION
  Report Type: 
  Country: None (occurrence: None)
  Receive Date: 20080909
  Receipt Date: 20080828
  Transmission Date: 20090109
  Serious: Yes (Death, Hospitalization, Other)
  Sender: FDA-Public Use
  Company Number: JPI-P-004460

PATIENT
  Age: 43 Year
  Sex: Female

DRUGS (9)
  1. XYREM [Suspect]
     Indication: CATAPLEXY
     Dosage: 5.5 GM (2.75 GM, 2 IN 1 D), ORAL, 11 GM (2.75 GM,4 IN 1 D) ,ORAL, 7.5 GM (3.75 GM,2 IN 1 D) ,ORAL
     Route: 048
     Dates: start: 20080301, end: 20080428
  2. XYREM [Suspect]
     Indication: INSOMNIA
     Dosage: 5.5 GM (2.75 GM, 2 IN 1 D), ORAL, 11 GM (2.75 GM,4 IN 1 D) ,ORAL, 7.5 GM (3.75 GM,2 IN 1 D) ,ORAL
     Route: 048
     Dates: start: 20080301, end: 20080428
  3. XYREM [Suspect]
     Indication: NARCOLEPSY
     Dosage: 5.5 GM (2.75 GM, 2 IN 1 D), ORAL, 11 GM (2.75 GM,4 IN 1 D) ,ORAL, 7.5 GM (3.75 GM,2 IN 1 D) ,ORAL
     Route: 048
     Dates: start: 20080301, end: 20080428
  4. XYREM [Suspect]
     Indication: CATAPLEXY
     Dosage: 5.5 GM (2.75 GM, 2 IN 1 D), ORAL, 11 GM (2.75 GM,4 IN 1 D) ,ORAL, 7.5 GM (3.75 GM,2 IN 1 D) ,ORAL
     Route: 048
     Dates: start: 20080429, end: 20080429
  5. XYREM [Suspect]
     Indication: INSOMNIA
     Dosage: 5.5 GM (2.75 GM, 2 IN 1 D), ORAL, 11 GM (2.75 GM,4 IN 1 D) ,ORAL, 7.5 GM (3.75 GM,2 IN 1 D) ,ORAL
     Route: 048
     Dates: start: 20080429, end: 20080429
  6. XYREM [Suspect]
     Indication: NARCOLEPSY
     Dosage: 5.5 GM (2.75 GM, 2 IN 1 D), ORAL, 11 GM (2.75 GM,4 IN 1 D) ,ORAL, 7.5 GM (3.75 GM,2 IN 1 D) ,ORAL
     Route: 048
     Dates: start: 20080429, end: 20080429
  7. XYREM [Suspect]
     Indication: CATAPLEXY
     Dosage: 5.5 GM (2.75 GM, 2 IN 1 D), ORAL, 11 GM (2.75 GM,4 IN 1 D) ,ORAL, 7.5 GM (3.75 GM,2 IN 1 D) ,ORAL
     Route: 048
     Dates: start: 20080501
  8. XYREM [Suspect]
     Indication: INSOMNIA
     Dosage: 5.5 GM (2.75 GM, 2 IN 1 D), ORAL, 11 GM (2.75 GM,4 IN 1 D) ,ORAL, 7.5 GM (3.75 GM,2 IN 1 D) ,ORAL
     Route: 048
     Dates: start: 20080501
  9. XYREM [Suspect]
     Indication: NARCOLEPSY
     Dosage: 5.5 GM (2.75 GM, 2 IN 1 D), ORAL, 11 GM (2.75 GM,4 IN 1 D) ,ORAL, 7.5 GM (3.75 GM,2 IN 1 D) ,ORAL
     Route: 048
     Dates: start: 20080501

REACTIONS (13)
  - BRAIN DEATH [None]
  - COMA [None]
  - CONVULSION [None]
  - HEADACHE [None]
  - HEPATIC FAILURE [None]
  - HEPATIC HAEMORRHAGE [None]
  - INCORRECT DOSE ADMINISTERED [None]
  - MULTI-ORGAN FAILURE [None]
  - PSYCHOTIC DISORDER [None]
  - RENAL FAILURE [None]
  - ROAD TRAFFIC ACCIDENT [None]
  - TRAUMATIC LIVER INJURY [None]
  - URINARY TRACT INFECTION [None]
